FAERS Safety Report 5488188-5 (Version None)
Quarter: 2007Q4

REPORT INFORMATION
  Report Type: 
  Country: None (occurrence: None)
  Receive Date: 20071005
  Receipt Date: 20070822
  Transmission Date: 20080405
  Serious: No
  Sender: FDA-Public Use
  Company Number: PHEH2007US11511

PATIENT
  Age: 74 Year
  Sex: Female

DRUGS (6)
  1. TEKTURNA [Suspect]
     Dosage: 150 MG, QD, ORAL
     Route: 048
  2. BENICAR [Concomitant]
  3. AROMASIN [Concomitant]
  4. AREDIA [Concomitant]
  5. ACETYLSALICYLIC ACID SRT [Concomitant]
  6. FLAXSEED OIL (LINUM USITATISSIMUM SEED OIL) [Concomitant]

REACTIONS (3)
  - FUNGAL INFECTION [None]
  - URETHRAL DISCHARGE [None]
  - VAGINAL DISCHARGE [None]
